FAERS Safety Report 4477090-3 (Version None)
Quarter: 2004Q4

REPORT INFORMATION
  Report Type: 
  Country: None (occurrence: None)
  Receive Date: 20041013
  Receipt Date: 20040928
  Transmission Date: 20050328
  Serious: Yes (Death)
  Sender: FDA-Public Use
  Company Number: WAES 0409USA02652

PATIENT
  Age: 73 Year
  Sex: Male

DRUGS (11)
  1. COZAAR [Suspect]
     Indication: HYPERTENSION
     Dosage: 50 MG/DAILY; 100 MG/DAILY;
     Route: 048
     Dates: start: 20020405, end: 20020407
  2. COZAAR [Suspect]
     Indication: HYPERTENSION
     Dosage: 50 MG/DAILY; 100 MG/DAILY;
     Route: 048
     Dates: start: 20020408, end: 20020507
  3. COZAAR [Suspect]
     Indication: HYPERTENSION
     Dosage: 50 MG/DAILY; 100 MG/DAILY;
     Route: 048
     Dates: start: 20020508, end: 20020707
  4. ALDACTONE [Concomitant]
  5. CARVEDILOL [Concomitant]
  6. EPADEL [Concomitant]
  7. NATRIX [Concomitant]
  8. NORVASC [Concomitant]
  9. ZYLORIC [Concomitant]
  10. PIMOBENDAN [Concomitant]
  11. BUFFERIN [Suspect]
     Dosage: 81 MG/DAILY
     Route: 048
     Dates: start: 20020701, end: 20040215

REACTIONS (4)
  - ACCIDENT [None]
  - ANAEMIA [None]
  - DROWNING [None]
  - GASTRITIS [None]
